FAERS Safety Report 20757677 (Version 2)
Quarter: 2022Q2

REPORT INFORMATION
  Report Type: Report from Study
  Country: US (occurrence: US)
  Receive Date: 20220427
  Receipt Date: 20220524
  Transmission Date: 20220721
  Serious: Yes (Hospitalization, Other)
  Sender: FDA-Public Use
  Company Number: US-BRISTOL-MYERS SQUIBB COMPANY-2022-022001

PATIENT
  Age: 66 Year
  Sex: Female
  Weight: 70.7 kg

DRUGS (9)
  1. POMALYST [Suspect]
     Active Substance: POMALIDOMIDE
     Indication: Product used for unknown indication
     Route: 048
  2. REVLIMID [Suspect]
     Active Substance: LENALIDOMIDE
     Indication: Product used for unknown indication
     Route: 048
  3. DEXAMETHASONE [Concomitant]
     Active Substance: DEXAMETHASONE
  4. ELIQUIS [Concomitant]
     Active Substance: APIXABAN
  5. MIRTAZAPINE [Concomitant]
     Active Substance: MIRTAZAPINE
  6. TYLENOL [Concomitant]
     Active Substance: ACETAMINOPHEN
  7. BENZONATATE [Concomitant]
     Active Substance: BENZONATATE
  8. AMIODARONE [Concomitant]
     Active Substance: AMIODARONE
  9. ASPIRIN [Concomitant]
     Active Substance: ASPIRIN

REACTIONS (4)
  - Constipation [Unknown]
  - Fatigue [Unknown]
  - Pyrexia [Unknown]
  - Pneumonia [Unknown]

NARRATIVE: CASE EVENT DATE: 20220401
